FAERS Safety Report 8002835-5 (Version None)
Quarter: 2011Q4

REPORT INFORMATION
  Report Type: 
  Country: None (occurrence: None)
  Receive Date: 20111222
  Receipt Date: 20101123
  Transmission Date: 20120403
  Serious: No
  Sender: FDA-Public Use
  Company Number: US-GLAXOSMITHKLINE-A0894676A

PATIENT
  Age: 67 Year
  Sex: Male

DRUGS (2)
  1. PREDNISONE TAB [Concomitant]
  2. AVODART [Suspect]
     Indication: BENIGN PROSTATIC HYPERPLASIA
     Dosage: .5CAP PER DAY
     Route: 048
     Dates: start: 20101001, end: 20101101

REACTIONS (5)
  - RASH GENERALISED [None]
  - RASH PRURITIC [None]
  - RASH MACULAR [None]
  - HYPERSENSITIVITY [None]
  - RASH [None]
